FAERS Safety Report 6596295-9 (Version None)
Quarter: 2010Q1

REPORT INFORMATION
  Report Type: 
  Country: None (occurrence: None)
  Receive Date: 20100223
  Receipt Date: 20100210
  Transmission Date: 20100710
  Serious: Yes (Other)
  Sender: FDA-Public Use
  Company Number: PHHY2009JP58805

PATIENT
  Weight: 61 kg

DRUGS (10)
  1. ZOMETA [Suspect]
     Indication: METASTASES TO BONE
     Dosage: 4 MG, UNK
     Route: 041
     Dates: start: 20091219
  2. SPIRIVA [Concomitant]
     Indication: CHRONIC OBSTRUCTIVE PULMONARY DISEASE
     Dosage: 18 MG, UNK
     Dates: start: 20081211
  3. ZYLORIC ^FRESENIUS^ [Concomitant]
     Dosage: 108 MG, UNK
     Dates: start: 20081211
  4. PANVITAN [Concomitant]
     Dosage: 1 G, UNK
     Dates: start: 20081211
  5. HOKUNALIN [Concomitant]
     Indication: CHRONIC OBSTRUCTIVE PULMONARY DISEASE
     Dosage: UNK
     Dates: start: 20081211
  6. METHYCOBAL [Concomitant]
     Indication: PROPHYLAXIS
     Dosage: 500 UG, UNK
     Route: 048
     Dates: start: 20081211
  7. PARIET [Concomitant]
     Indication: GASTRITIS
     Dosage: 10 MG, UNK
     Route: 048
     Dates: start: 20081211
  8. CARBOPLATIN [Concomitant]
  9. ACETAMINOPHEN [Concomitant]
  10. CHEMOTHERAPEUTICS NOS [Concomitant]

REACTIONS (6)
  - ABDOMINAL DISCOMFORT [None]
  - C-REACTIVE PROTEIN INCREASED [None]
  - INFECTION [None]
  - PLATELET COUNT INCREASED [None]
  - PYREXIA [None]
  - WHITE BLOOD CELL COUNT DECREASED [None]
